FAERS Safety Report 9007082 (Version 1)
Quarter: 2013Q1

REPORT INFORMATION
  Report Type: Spontaneous
  Country: NL (occurrence: NL)
  Receive Date: 20130110
  Receipt Date: 20130110
  Transmission Date: 20140127
  Serious: Yes (Hospitalization)
  Sender: FDA-Public Use
  Company Number: NL-PFIZER INC-2013008581

PATIENT
  Sex: Male

DRUGS (1)
  1. ATORVASTATIN PFIZER [Suspect]
     Dosage: UNK

REACTIONS (4)
  - Chest pain [Unknown]
  - Dizziness [Unknown]
  - Nightmare [Unknown]
  - Sleep disorder [Unknown]
